FAERS Safety Report 8429524-7 (Version None)
Quarter: 2012Q2

REPORT INFORMATION
  Report Type: 
  Country: None (occurrence: None)
  Receive Date: 20120612
  Receipt Date: 20120608
  Transmission Date: 20120825
  Serious: No
  Sender: FDA-Public Use
  Company Number: US-PFIZER INC-2012140011

PATIENT

DRUGS (2)
  1. LYRICA [Suspect]
     Dosage: 150 MG, UNK
  2. LYRICA [Suspect]
     Dosage: 300 MG, A DAY
     Dates: start: 20090709

REACTIONS (1)
  - PAIN [None]
